FAERS Safety Report 5900428-4 (Version None)
Quarter: 2008Q3

REPORT INFORMATION
  Report Type: 
  Country: None (occurrence: None)
  Receive Date: 20080926
  Receipt Date: 20080915
  Transmission Date: 20090109
  Serious: Yes (Hospitalization)
  Sender: FDA-Public Use
  Company Number: DE-ROCHE-586452

PATIENT
  Age: 68 Year
  Sex: Female
  Weight: 91 kg

DRUGS (5)
  1. CAPECITABINE [Suspect]
     Route: 048
     Dates: start: 20080625, end: 20080708
  2. LEVOTHYROXINE SODIUM [Concomitant]
     Indication: HYPOTHYROIDISM
     Dosage: FREQUENCY REPORTED: 1
     Route: 048
  3. IRBESARTAN [Concomitant]
     Indication: HYPERTENSION
     Dosage: FREQUENCY REPORTED: 1.
     Route: 048
  4. ZOMETA [Concomitant]
     Dosage: FREQUENCY REPORTED: 1/4 N.
     Route: 042
     Dates: start: 20070326
  5. FENTANYL [Concomitant]
     Indication: PAIN
     Dosage: DRUG NAME REPORTED: FENTANYL PLAST, FREQUENCY: 1.
     Route: 062
     Dates: start: 20080709

REACTIONS (5)
  - BLOOD BILIRUBIN INCREASED [None]
  - FATIGUE [None]
  - GAMMA-GLUTAMYLTRANSFERASE INCREASED [None]
  - JAUNDICE [None]
  - THROMBOCYTOPENIA [None]
